FAERS Safety Report 11003586 (Version 1)
Quarter: 2015Q2

REPORT INFORMATION
  Report Type: Spontaneous
  Country: US (occurrence: None)
  Receive Date: 20150408
  Receipt Date: 20150408
  Transmission Date: 20150821
  Serious: No
  Sender: FDA-Public Use
  Company Number: None

PATIENT
  Age: 83 Year
  Sex: Male

DRUGS (1)
  1. RITUXAN [Suspect]
     Active Substance: RITUXIMAB

REACTIONS (7)
  - Tachycardia [None]
  - Infusion related reaction [None]
  - Dyspnoea [None]
  - Hypoxia [None]
  - Atrial fibrillation [None]
  - Chest discomfort [None]
  - Wheezing [None]

NARRATIVE: CASE EVENT DATE: 20150401
